FAERS Safety Report 10401160 (Version 2)
Quarter: 2014Q3

REPORT INFORMATION
  Report Type: Spontaneous
  Country: GR (occurrence: GR)
  Receive Date: 20140822
  Receipt Date: 20140822
  Transmission Date: 20150326
  Serious: Yes (Hospitalization, Other)
  Sender: FDA-Public Use
  Company Number: GR-AMGEN-GRCSP2014032304

PATIENT
  Age: 75 Year
  Sex: Female
  Weight: 56 kg

DRUGS (7)
  1. GLUCOPHAGE [Concomitant]
     Active Substance: METFORMIN HYDROCHLORIDE
  2. LOSEC                              /00661201/ [Concomitant]
  3. SOLOSA [Concomitant]
     Active Substance: GLIMEPIRIDE
     Indication: DIABETES MELLITUS
     Dosage: 1.5 MG, QD
     Route: 048
     Dates: start: 2012
  4. NEXIUM [Concomitant]
     Active Substance: ESOMEPRAZOLE MAGNESIUM
     Indication: GASTROOESOPHAGEAL REFLUX DISEASE
     Dosage: 40 MG, QD
     Route: 048
     Dates: start: 2012
  5. TENORMIN [Concomitant]
     Active Substance: ATENOLOL
     Indication: HYPERTENSION
     Dosage: 50 MG, QD
     Route: 048
     Dates: start: 1984
  6. NORVASC [Concomitant]
     Active Substance: AMLODIPINE BESYLATE
     Indication: HYPERTENSION
     Dosage: 5 MG, QD
     Route: 048
     Dates: start: 2010
  7. NPLATE [Suspect]
     Active Substance: ROMIPLOSTIM
     Indication: IMMUNE THROMBOCYTOPENIC PURPURA
     Dosage: 9-10 UG/KG
     Route: 065
     Dates: start: 20100320

REACTIONS (1)
  - Myasthenia gravis [Not Recovered/Not Resolved]

NARRATIVE: CASE EVENT DATE: 20140416
